FAERS Safety Report 13838545 (Version 1)
Quarter: 2017Q3

REPORT INFORMATION
  Report Type: Spontaneous
  Country: US (occurrence: US)
  Receive Date: 20170804
  Receipt Date: 20170804
  Transmission Date: 20171127
  Serious: Yes (Disabling)
  Sender: FDA-Public Use
  Company Number: None

PATIENT
  Age: 43 Year
  Sex: Male
  Weight: 77.85 kg

DRUGS (1)
  1. CIALIS [Suspect]
     Active Substance: TADALAFIL
     Indication: ERECTILE DYSFUNCTION
     Route: 048

REACTIONS (7)
  - No reaction on previous exposure to drug [None]
  - Deafness [None]
  - Depression [None]
  - Ear discomfort [None]
  - Feeling abnormal [None]
  - Tinnitus [None]
  - Discomfort [None]

NARRATIVE: CASE EVENT DATE: 20161013
